FAERS Safety Report 22936990 (Version 3)
Quarter: 2024Q1

REPORT INFORMATION
  Report Type: Report from Study
  Country: CA (occurrence: CA)
  Receive Date: 20230912
  Receipt Date: 20240119
  Transmission Date: 20240409
  Serious: Yes (Other)
  Sender: FDA-Public Use
  Company Number: CA-BIOGEN-2023BI01225230

PATIENT
  Sex: Female

DRUGS (1)
  1. DALFAMPRIDINE [Suspect]
     Active Substance: DALFAMPRIDINE
     Indication: Gene mutation
     Route: 050
     Dates: start: 20230831

REACTIONS (4)
  - Febrile convulsion [Recovered/Resolved]
  - Off label use [Unknown]
  - Ataxia [Not Recovered/Not Resolved]
  - Contraindicated product administered [Unknown]
